FAERS Safety Report 23158673 (Version 1)
Quarter: 2023Q4

REPORT INFORMATION
  Report Type: Spontaneous
  Country: US (occurrence: None)
  Receive Date: 20231106
  Receipt Date: 20231106
  Transmission Date: 20240110
  Serious: No
  Sender: FDA-Public Use
  Company Number: None

PATIENT
  Sex: Female

DRUGS (9)
  1. LENALIDOMIDE [Suspect]
     Active Substance: LENALIDOMIDE
     Indication: Neoplasm malignant
     Dosage: 10 MG ORAL??TAKE 1 CAPSULE BY MOUTH ONCE A DAY FOR 21 DAYS AND 7 DAYS OFF?
     Route: 048
     Dates: start: 20230830
  2. ACYCLOVIR [Concomitant]
  3. CYCLOBENZAPRINE [Concomitant]
     Active Substance: CYCLOBENZAPRINE
  4. LYRICA [Concomitant]
  5. OLMESA MEDOX [Concomitant]
  6. OMEPRAZOLE [Concomitant]
     Active Substance: OMEPRAZOLE
  7. OXYCODONE [Concomitant]
  8. REVLIMID [Concomitant]
  9. XAREL [Concomitant]

REACTIONS (2)
  - Therapy interrupted [None]
  - Cataract operation [None]
